FAERS Safety Report 24186631 (Version 1)
Quarter: 2024Q3

REPORT INFORMATION
  Report Type: Spontaneous
  Country: GB (occurrence: GB)
  Receive Date: 20240808
  Receipt Date: 20240808
  Transmission Date: 20241017
  Serious: Yes (Other)
  Sender: AUROBINDO
  Company Number: GB-MHRA-TPP49612862C9396304YC1721640855308

PATIENT
  Age: 72 Year
  Sex: Male

DRUGS (1)
  1. MONTELUKAST [Suspect]
     Active Substance: MONTELUKAST SODIUM
     Indication: Product used for unknown indication
     Dosage: UNK
     Route: 048
     Dates: start: 20240325

REACTIONS (3)
  - Sleep disorder [Unknown]
  - Dysphagia [Recovered/Resolved]
  - Seizure [Recovered/Resolved]
